FAERS Safety Report 8229182-0 (Version None)
Quarter: 2012Q1

REPORT INFORMATION
  Report Type: 
  Country: None (occurrence: None)
  Receive Date: 20120322
  Receipt Date: 20120316
  Transmission Date: 20120608
  Serious: Yes (Other)
  Sender: FDA-Public Use
  Company Number: IT-PFIZER INC-2012071761

PATIENT
  Age: 71 Year
  Sex: Female

DRUGS (10)
  1. ENOXAPARIN SODIUM [Concomitant]
  2. LEVOTHYROXINE SODIUM [Concomitant]
  3. FUROSEMIDE [Concomitant]
  4. LOPEMID [Concomitant]
  5. PARACETAMOL [Concomitant]
     Dosage: 1 DF, UNK
     Route: 042
     Dates: start: 20110221
  6. ZYVOX [Suspect]
     Indication: SEPSIS
     Dosage: 600 MG, 1X/DAY
     Route: 042
     Dates: start: 20120131, end: 20120208
  7. COLISTIN SULFATE [Suspect]
     Indication: SEPSIS
     Dosage: 4000000 IU, 1X/DAY
     Route: 042
     Dates: start: 20120121, end: 20120212
  8. DIPRIVAN [Concomitant]
  9. ALBUMIN HUMAN [Concomitant]
  10. DOPAMINE HYDROCHLORIDE [Concomitant]

REACTIONS (1)
  - SKIN EXFOLIATION [None]
